FAERS Safety Report 8839656 (Version 2)
Quarter: 2012Q4

REPORT INFORMATION
  Report Type: 
  Country: JP (occurrence: JP)
  Receive Date: 20121015
  Receipt Date: 20121129
  Transmission Date: 20130627
  Serious: Yes (Other)
  Sender: FDA-Public Use
  Company Number: JP-SANOFI-AVENTIS-2012SA074997

PATIENT
  Age: 60 Year
  Sex: Male

DRUGS (6)
  1. OXALIPLATIN [Suspect]
     Indication: COLON CANCER
     Route: 041
     Dates: start: 201002
  2. CALCIUM LEVOFOLINATE [Concomitant]
     Dates: start: 201002
  3. FLUOROURACIL [Concomitant]
     Dates: start: 201002
  4. AVASTIN [Concomitant]
     Dates: start: 20100324
  5. PLETAAL [Concomitant]
     Indication: PAIN
     Route: 048
  6. WARFARIN [Concomitant]

REACTIONS (2)
  - Iliac artery occlusion [Recovering/Resolving]
  - Mechanical ileus [Recovering/Resolving]
